FAERS Safety Report 5566547-X (Version None)
Quarter: 2007Q4

REPORT INFORMATION
  Report Type: 
  Country: None (occurrence: None)
  Receive Date: 20071219
  Receipt Date: 20071205
  Transmission Date: 20080405
  Serious: Yes (Hospitalization, Other)
  Sender: FDA-Public Use
  Company Number: US-ELI_LILLY_AND_COMPANY-US200712001018

PATIENT
  Sex: Female

DRUGS (1)
  1. FORTEO [Suspect]
     Indication: BONE DISORDER
     Dates: start: 20060601

REACTIONS (8)
  - CATHETER RELATED INFECTION [None]
  - DYSPHAGIA [None]
  - GAIT DISTURBANCE [None]
  - LUNG NEOPLASM MALIGNANT [None]
  - MOBILITY DECREASED [None]
  - MULTIPLE SCLEROSIS [None]
  - OSTEOPOROSIS [None]
  - SEPSIS [None]
